FAERS Safety Report 7553781-2 (Version None)
Quarter: 2011Q2

REPORT INFORMATION
  Report Type: 
  Country: None (occurrence: None)
  Receive Date: 20110617
  Receipt Date: 20110613
  Transmission Date: 20111010
  Serious: Yes (Other)
  Sender: FDA-Public Use
  Company Number: US-SANOFI-AVENTIS-2011SA030363

PATIENT
  Age: 80 Year
  Sex: Female
  Weight: 99.42 kg

DRUGS (14)
  1. COUMADIN [Concomitant]
     Route: 065
  2. ALL OTHER THERAPEUTIC PRODUCTS [Concomitant]
  3. AMLODIPINE [Concomitant]
     Indication: HYPERTENSION
     Route: 065
  4. LISINOPRIL [Concomitant]
     Indication: HYPERTENSION
  5. LOPRESSOR [Suspect]
     Route: 048
  6. SYNTHROID [Concomitant]
  7. ZOCOR [Concomitant]
  8. LORAZEPAM [Concomitant]
  9. PIOGLITAZONE [Concomitant]
  10. MIRTAZAPINE [Concomitant]
  11. ALTACE [Concomitant]
  12. MULTAQ [Suspect]
     Indication: ATRIAL FLUTTER
     Route: 048
     Dates: start: 20110511, end: 20110512
  13. REQUIP [Concomitant]
  14. ENOXAPARIN [Concomitant]

REACTIONS (3)
  - RENAL FAILURE ACUTE [None]
  - BLOOD CREATININE INCREASED [None]
  - GLOMERULAR FILTRATION RATE DECREASED [None]
